FAERS Safety Report 8962440 (Version 2)
Quarter: 2013Q1

REPORT INFORMATION
  Report Type: Report from Study
  Country: FR (occurrence: FR)
  Receive Date: 20121214
  Receipt Date: 20130111
  Transmission Date: 20140127
  Serious: Yes (Death)
  Sender: FDA-Public Use
  Company Number: PHHY2012FR115110

PATIENT
  Sex: 0

DRUGS (1)
  1. ALISKIREN [Suspect]
     Dosage: UNK
     Dates: start: 20100304, end: 20120504

REACTIONS (2)
  - Diabetic complication [Fatal]
  - Renal failure chronic [Fatal]
